FAERS Safety Report 23041359 (Version 2)
Quarter: 2023Q4

REPORT INFORMATION
  Report Type: Report from Study
  Country: US (occurrence: US)
  Receive Date: 20231007
  Receipt Date: 20231013
  Transmission Date: 20240110
  Serious: No
  Sender: FDA-Public Use
  Company Number: US-002147023-NVSC2023US211805

PATIENT
  Sex: Male

DRUGS (1)
  1. COSENTYX [Suspect]
     Active Substance: SECUKINUMAB
     Indication: Psoriasis
     Dosage: UNK
     Route: 065

REACTIONS (6)
  - Mental disorder [Unknown]
  - Dyspareunia [Unknown]
  - Genital haemorrhage [Unknown]
  - Skin laceration [Unknown]
  - Psoriasis [Unknown]
  - Drug ineffective [Unknown]
